FAERS Safety Report 16361638 (Version 2)
Quarter: 2019Q2

REPORT INFORMATION
  Report Type: Spontaneous
  Country: KR (occurrence: KR)
  Receive Date: 20190528
  Receipt Date: 20190620
  Transmission Date: 20190711
  Serious: Yes (Other)
  Sender: FDA-Public Use
  Company Number: PHHY2019KR121034

PATIENT
  Age: 19 Year
  Sex: Female

DRUGS (1)
  1. TRILEPTAL [Suspect]
     Active Substance: OXCARBAZEPINE
     Indication: EPILEPSY
     Dosage: 600 MG, QD (TOTAL CUMULATIVE DOSE WAS 2190G)
     Route: 065

REACTIONS (5)
  - Cataract cortical [Not Recovered/Not Resolved]
  - Visual impairment [Not Recovered/Not Resolved]
  - Narrow anterior chamber angle [Unknown]
  - Cataract subcapsular [Not Recovered/Not Resolved]
  - Intraocular pressure increased [Unknown]
